FAERS Safety Report 11310759 (Version 3)
Quarter: 2015Q3

REPORT INFORMATION
  Report Type: Spontaneous
  Country: US (occurrence: US)
  Receive Date: 20150725
  Receipt Date: 20150916
  Transmission Date: 20151125
  Serious: Yes (Death, Life-Threatening, Hospitalization, Disabling, Other)
  Sender: FDA-Public Use
  Company Number: US-009507513-1507USA006209

PATIENT
  Age: 80 Year
  Sex: Male
  Weight: 168 kg

DRUGS (2)
  1. TICE BCG [Concomitant]
     Active Substance: BACILLUS CALMETTE-GUERIN SUBSTRAIN TICE LIVE ANTIGEN
     Indication: BLADDER CANCER
     Dosage: ONE VIAL
     Route: 066
     Dates: start: 20150709
  2. INTRON A [Suspect]
     Active Substance: INTERFERON ALFA-2B
     Indication: BLADDER CANCER
     Dosage: 1 DOSE 100 MILLION UNITS
     Dates: start: 20150709

REACTIONS (3)
  - Hypersensitivity [Not Recovered/Not Resolved]
  - Pyrexia [Not Recovered/Not Resolved]
  - Death [Fatal]

NARRATIVE: CASE EVENT DATE: 201507
